FAERS Safety Report 8887329 (Version 5)
Quarter: 2013Q3

REPORT INFORMATION
  Report Type: Spontaneous
  Country: US (occurrence: US)
  Receive Date: 20121101
  Receipt Date: 20130716
  Transmission Date: 20140515
  Serious: Yes (Life-Threatening, Hospitalization)
  Sender: FDA-Public Use
  Company Number: US-PFIZER INC-2012272240

PATIENT
  Age: 59 Year
  Sex: Female
  Weight: 98.41 kg

DRUGS (4)
  1. LYRICA [Suspect]
     Indication: FIBROMYALGIA
     Dosage: 100 MG, 2X/DAY
     Route: 048
     Dates: start: 2007
  2. LYRICA [Suspect]
     Indication: NEUROPATHY PERIPHERAL
  3. COMBIVENT [Concomitant]
     Indication: DYSPNOEA
     Dosage: UNK
  4. ADVAIR [Concomitant]
     Indication: DYSPNOEA
     Dosage: UNK

REACTIONS (3)
  - Atrial fibrillation [Recovered/Resolved]
  - Malaise [Recovered/Resolved]
  - Back disorder [Unknown]
